FAERS Safety Report 4316441-7 (Version None)
Quarter: 2004Q1

REPORT INFORMATION
  Report Type: 
  Country: None (occurrence: None)
  Receive Date: 20040312
  Receipt Date: 20040302
  Transmission Date: 20041129
  Serious: Yes (Death, Life-Threatening, Hospitalization)
  Sender: FDA-Public Use
  Company Number: GB-BRISTOL-MYERS SQUIBB COMPANY-12521829

PATIENT
  Age: 57 Year
  Sex: Male

DRUGS (5)
  1. CETUXIMAB [Suspect]
     Indication: COLORECTAL CANCER
     Dosage: THERAPY INITIATED ON 12-FEB-2004
     Route: 042
     Dates: start: 20040228, end: 20040228
  2. IRINOTECAN [Suspect]
     Indication: COLORECTAL CANCER
     Route: 042
     Dates: start: 20040212, end: 20040212
  3. CO-CODAMOL [Concomitant]
     Dates: start: 20030601
  4. ORAMORPH SR [Concomitant]
  5. ANTIHISTAMINE NOS [Concomitant]
     Dates: start: 20040226, end: 20040301

REACTIONS (5)
  - COLONIC OBSTRUCTION [None]
  - DYSPNOEA [None]
  - INTESTINAL PERFORATION [None]
  - METASTASES TO LIVER [None]
  - PERITONITIS [None]
